FAERS Safety Report 20481604 (Version 1)
Quarter: 2022Q1

REPORT INFORMATION
  Report Type: Spontaneous
  Country: US (occurrence: None)
  Receive Date: 20220216
  Receipt Date: 20220216
  Transmission Date: 20220423
  Serious: Yes (Hospitalization)
  Sender: FDA-Public Use
  Company Number: None

PATIENT
  Sex: Female

DRUGS (38)
  1. ENBREL [Suspect]
     Active Substance: ETANERCEPT
     Indication: Psoriatic arthropathy
     Dosage: FREQUENCY : WEEKLY;?
     Route: 058
     Dates: start: 20180626
  2. ACID REDUCER TAB 10MG [Concomitant]
  3. BUSPIRONE TAB 15MG [Concomitant]
  4. CLONAZEPAM TAB 0.5MG [Concomitant]
  5. CLOPIDOGREL TAB 75MG [Concomitant]
  6. CLOTRIMAZOLE TRO 10MG [Concomitant]
  7. DICLOFENAC [Concomitant]
     Active Substance: DICLOFENAC
  8. DICYCLOMINE CAP 10MG [Concomitant]
  9. ENBREL [Concomitant]
     Active Substance: ETANERCEPT
  10. FLEXERIL TAB 10MG [Concomitant]
  11. FLUTICASONE [Concomitant]
     Active Substance: FLUTICASONE
  12. FOLIC ACID TAB 1MG [Concomitant]
  13. GABAPENTIN [Concomitant]
     Active Substance: GABAPENTIN
  14. IBUPROFEN [Concomitant]
     Active Substance: IBUPROFEN
  15. IMIQUIMOD CRE 5% [Concomitant]
  16. KETOCONAZOLE SHA 2% [Concomitant]
  17. MAGNESIUM CAP 400MG [Concomitant]
  18. MELATONIN [Concomitant]
     Active Substance: MELATONIN
  19. MIRALAX POW 3350 NF [Concomitant]
  20. MYRBETRIQ TAB 25MG [Concomitant]
  21. NEUPRO DIS 4MG/24HR [Concomitant]
  22. NYSTATIN [Concomitant]
     Active Substance: NYSTATIN
  23. NYSTATIN SUS 100000 [Concomitant]
  24. PANTOPRAZOLE TAB 40MG [Concomitant]
  25. PRISTIQ TAB 25MG [Concomitant]
  26. PRISTIQ TAB 50MG [Concomitant]
  27. PROMETHAZINE HYDROCHLORIDE [Concomitant]
     Active Substance: PROMETHAZINE HYDROCHLORIDE
  28. REQUIP TAB 1 MG [Concomitant]
  29. ROPINIROLE TAB 0.25MG [Concomitant]
  30. SIMETHICONE CHW 125MG [Concomitant]
  31. STOOL SOFTENER (DOCUSATE) [Concomitant]
     Active Substance: DOCUSATE
  32. SUMATRIPTAN TAB 100MG [Concomitant]
  33. TOPAMAX TAB 50MG [Concomitant]
  34. TRELEGY AER ELLI PTA [Concomitant]
  35. VENTOLIN HFA [Concomitant]
     Active Substance: ALBUTEROL SULFATE
  36. VITAMIN 812 TAB 500MCG [Concomitant]
  37. VITAMIN D CAP 50000UNT [Concomitant]
  38. ZOFRAN TAB 8MG [Concomitant]

REACTIONS (3)
  - Surgery [None]
  - Cystitis [None]
  - Therapy interrupted [None]
